FAERS Safety Report 12941300 (Version 1)
Quarter: 2016Q4

REPORT INFORMATION
  Report Type: Spontaneous
  Country: US (occurrence: US)
  Receive Date: 20161115
  Receipt Date: 20161115
  Transmission Date: 20170207
  Serious: Yes (Hospitalization)
  Sender: FDA-Public Use
  Company Number: None

PATIENT
  Age: 70 Year
  Sex: Male
  Weight: 125 kg

DRUGS (11)
  1. GLUCOTROL [Concomitant]
     Active Substance: GLIPIZIDE
  2. APIXABAN [Concomitant]
     Active Substance: APIXABAN
  3. ECOTRIN [Concomitant]
     Active Substance: ASPIRIN
  4. PLAVIX [Concomitant]
     Active Substance: CLOPIDOGREL BISULFATE
  5. TRADJENTA [Concomitant]
     Active Substance: LINAGLIPTIN
  6. MAGO [Concomitant]
  7. NITROPN [Concomitant]
  8. LASIX [Concomitant]
     Active Substance: FUROSEMIDE
  9. LEVOFLOXACIN. [Suspect]
     Active Substance: LEVOFLOXACIN
     Indication: PNEUMONIA
     Dosage: 750MG/150ML Q24HRS IVPB
     Route: 042
  10. COREG [Concomitant]
     Active Substance: CARVEDILOL
  11. LIPITOR [Concomitant]
     Active Substance: ATORVASTATIN CALCIUM

REACTIONS (2)
  - Cardio-respiratory arrest [None]
  - Seizure [None]

NARRATIVE: CASE EVENT DATE: 20150828
